FAERS Safety Report 4309522-5 (Version None)
Quarter: 2004Q1

REPORT INFORMATION
  Report Type: 
  Country: None (occurrence: None)
  Receive Date: 20040302
  Receipt Date: 20040210
  Transmission Date: 20041129
  Serious: Yes (Hospitalization)
  Sender: FDA-Public Use
  Company Number: 2004AP00691

PATIENT
  Age: 39 Year
  Sex: Male

DRUGS (20)
  1. MORPHINE [Suspect]
     Indication: CANCER PAIN
     Dosage: 200 MG BID
  2. MORPHINE [Suspect]
     Indication: CANCER PAIN
     Dosage: TITRATED OVER SEVERAL DAYS
  3. MORPHINE [Suspect]
     Indication: CANCER PAIN
     Dosage: 6 ML/HR IT
  4. MORPHINE [Suspect]
     Indication: CANCER PAIN
     Dosage: 8 ML/HR IT
  5. MORPHINE [Suspect]
     Indication: CANCER PAIN
     Dosage: 7 ML/HR/IT
  6. BUPIVACAINE [Suspect]
     Indication: CANCER PAIN
  7. BUPIVACAINE [Suspect]
     Indication: CANCER PAIN
  8. CLONIDINE [Suspect]
     Indication: CANCER PAIN
  9. CLONIDINE [Suspect]
     Indication: CANCER PAIN
  10. TETRACAINE POLYGYL STERILE OPHTHALMIC SOLUTION [Suspect]
     Indication: CANCER PAIN
  11. HYDROMORPHONE [Suspect]
     Indication: CANCER PAIN
  12. HYDROMORPHONE [Suspect]
     Indication: CANCER PAIN
     Dosage: 80 MG/HR IV
     Route: 042
  13. HYDROMORPHONE [Suspect]
     Indication: CANCER PAIN
     Dosage: 40 MG
  14. MIDAZOLAM HCL [Suspect]
     Indication: CANCER PAIN
     Dosage: 20 MG/HR IV
     Route: 042
  15. MIDAZOLAM HCL [Suspect]
     Indication: CANCER PAIN
     Dosage: 25 MG/HR IV
     Route: 042
  16. MIDAZOLAM HCL [Suspect]
     Indication: CANCER PAIN
     Dosage: 0.1 MG/ML IV
     Route: 042
  17. PHENYTOIN [Suspect]
     Indication: CANCER PAIN
     Dosage: 100 MG Q8H IV
     Route: 042
  18. DEXAMETHASONE [Suspect]
     Indication: CANCER PAIN
     Dosage: 4 MG Q6H IV
     Route: 042
  19. KETAMINE HCL [Suspect]
     Indication: CANCER PAIN
     Dosage: 2 MG/ML IV
     Route: 042
  20. FENTANYL [Suspect]
     Indication: CANCER PAIN
     Dosage: 5 UG/ML IV
     Route: 042

REACTIONS (8)
  - BACK PAIN [None]
  - COMPUTERISED TOMOGRAM ABNORMAL [None]
  - DRUG INEFFECTIVE [None]
  - HYPERAESTHESIA [None]
  - PAIN EXACERBATED [None]
  - SPINAL CORD NEOPLASM [None]
  - SPINAL OSTEOARTHRITIS [None]
  - THINKING ABNORMAL [None]
